FAERS Safety Report 12186107 (Version 1)
Quarter: 2016Q1

REPORT INFORMATION
  Report Type: Spontaneous
  Country: DE (occurrence: DE)
  Receive Date: 20160317
  Receipt Date: 20160317
  Transmission Date: 20160526
  Serious: Yes (Other)
  Sender: FDA-Public Use
  Company Number: DE-DRREDDYS-GER/GER/16/0077853

PATIENT
  Age: 1 Day
  Sex: Male
  Weight: 3.38 kg

DRUGS (13)
  1. CITALOPRAM [Suspect]
     Active Substance: CITALOPRAM HYDROBROMIDE
     Indication: MIGRAINE PROPHYLAXIS
     Route: 064
     Dates: start: 20141218, end: 20150910
  2. TRAMADOL. [Concomitant]
     Active Substance: TRAMADOL
     Indication: PAIN
     Route: 064
  3. PREDNISOLON [Concomitant]
     Active Substance: PREDNISOLONE
     Indication: SJOGREN^S SYNDROME
     Route: 064
     Dates: start: 20141218, end: 20150910
  4. PROTHYRID [Concomitant]
     Active Substance: LEVOTHYROXINE SODIUM
     Indication: HYPOTHYROIDISM
     Route: 064
     Dates: start: 20141218, end: 20150910
  5. FOLSAEURE [Concomitant]
     Active Substance: FOLIC ACID
     Indication: PROPHYLAXIS OF NEURAL TUBE DEFECT
     Route: 064
     Dates: start: 20150206, end: 20150206
  6. VIGANTOLETTEN [Concomitant]
     Active Substance: CHOLECALCIFEROL
     Indication: OSTEOPOROSIS PROPHYLAXIS
  7. PANTOPRAZOLE [Concomitant]
     Active Substance: PANTOPRAZOLE SODIUM
     Indication: GASTROOESOPHAGEAL REFLUX DISEASE
     Route: 064
     Dates: start: 20141218, end: 20150910
  8. QUENSYL [Concomitant]
     Active Substance: HYDROXYCHLOROQUINE
     Indication: SJOGREN^S SYNDROME
     Route: 064
     Dates: start: 20141218, end: 20150910
  9. VIGANTOLETTEN [Concomitant]
     Active Substance: CHOLECALCIFEROL
     Indication: VITAMIN D DEFICIENCY
     Route: 064
     Dates: start: 20141218, end: 20150910
  10. NOVAMINSULFON [Concomitant]
     Active Substance: METAMIZOLE
     Indication: PAIN
     Route: 064
     Dates: start: 20141218, end: 20150206
  11. ASCOTOP [Concomitant]
     Active Substance: ZOLMITRIPTAN
     Indication: MIGRAINE
     Route: 064
     Dates: start: 20141218, end: 20150206
  12. ISLA-MOOS [Concomitant]
     Indication: TONSILLITIS
     Route: 064
  13. PARACETAMOL [Concomitant]
     Active Substance: ACETAMINOPHEN
     Indication: TONSILLITIS
     Route: 064

REACTIONS (4)
  - Respiratory disorder neonatal [Recovered/Resolved]
  - Temperature regulation disorder [Recovered/Resolved]
  - Foetal exposure during pregnancy [Recovered/Resolved]
  - Myoclonus [Recovered/Resolved]

NARRATIVE: CASE EVENT DATE: 20150910
